FAERS Safety Report 15939441 (Version 2)
Quarter: 2019Q4

REPORT INFORMATION
  Report Type: Report from Study
  Country: HN (occurrence: HN)
  Receive Date: 20190208
  Receipt Date: 20191105
  Transmission Date: 20200122
  Serious: Yes (Death, Life-Threatening, Other)
  Sender: FDA-Public Use
  Company Number: HN-SA-2019SA035827

PATIENT
  Age: 71 Year
  Sex: Male

DRUGS (3)
  1. INSULIN GLARGINE [Suspect]
     Active Substance: INSULIN GLARGINE
     Indication: DIABETES MELLITUS
     Dosage: 32 IU, QD (24 HOURS)
     Route: 058
     Dates: start: 201707
  2. PLAVIX [Suspect]
     Active Substance: CLOPIDOGREL BISULFATE
     Indication: THROMBOSIS PROPHYLAXIS
  3. PLAVIX [Suspect]
     Active Substance: CLOPIDOGREL BISULFATE
     Indication: NERVOUS SYSTEM DISORDER
     Dosage: 75 MG, QD
     Route: 048
     Dates: start: 201902, end: 201902

REACTIONS (2)
  - Transient ischaemic attack [Not Recovered/Not Resolved]
  - Gastric haemorrhage [Fatal]

NARRATIVE: CASE EVENT DATE: 20181218
